FAERS Safety Report 19792752 (Version 3)
Quarter: 2021Q4

REPORT INFORMATION
  Report Type: Report from Study
  Country: CO (occurrence: CO)
  Receive Date: 20210906
  Receipt Date: 20211029
  Transmission Date: 20220304
  Serious: Yes (Hospitalization, Other)
  Sender: FDA-Public Use
  Company Number: CO-SA-SAC20210902000823

PATIENT
  Age: 58 Year
  Sex: Female

DRUGS (8)
  1. DUPILUMAB [Suspect]
     Active Substance: DUPILUMAB
     Indication: Asthma
     Dosage: 200 MG, QOW
     Route: 058
     Dates: start: 20200225
  2. FUROSEMIDE [Concomitant]
     Active Substance: FUROSEMIDE
  3. METAMIZOLE SODIUM [Concomitant]
     Active Substance: METAMIZOLE SODIUM
  4. CARVEDILOL [Concomitant]
     Active Substance: CARVEDILOL
     Indication: Pulmonary hypertension
     Dosage: UNK
  5. LOSARTAN [Concomitant]
     Active Substance: LOSARTAN
     Indication: Pulmonary hypertension
     Dosage: UNK
  6. ROSUVASTATIN [Concomitant]
     Active Substance: ROSUVASTATIN
     Indication: Pulmonary hypertension
     Dosage: UNK
  7. ASPIRIN [Concomitant]
     Active Substance: ASPIRIN
     Indication: Pulmonary hypertension
     Dosage: UNK
  8. ENOXAPARIN SODIUM [Concomitant]
     Active Substance: ENOXAPARIN SODIUM
     Indication: Anticoagulant therapy
     Dosage: 80 MG, QD
     Dates: start: 20061206

REACTIONS (5)
  - Arrhythmia [Recovering/Resolving]
  - Myocardial infarction [Recovering/Resolving]
  - Renal pain [Unknown]
  - Hypertension [Recovered/Resolved]
  - Bladder disorder [Unknown]

NARRATIVE: CASE EVENT DATE: 20210101
